FAERS Safety Report 4959525-2 (Version None)
Quarter: 2006Q1

REPORT INFORMATION
  Report Type: 
  Country: None (occurrence: None)
  Receive Date: 20060331
  Receipt Date: 20060327
  Transmission Date: 20060701
  Serious: Yes (Other)
  Sender: FDA-Public Use
  Company Number: US-GLAXOSMITHKLINE-A0599183A

PATIENT
  Age: 62 Year
  Sex: Female

DRUGS (2)
  1. FORTAZ [Suspect]
     Indication: SKIN INFECTION
     Route: 058
     Dates: start: 20060323, end: 20060324
  2. DIALYSIS [Concomitant]

REACTIONS (4)
  - CONVULSION [None]
  - DYSKINESIA [None]
  - HALLUCINATION [None]
  - MUSCLE CONTRACTIONS INVOLUNTARY [None]
